FAERS Safety Report 5758335-6 (Version None)
Quarter: 2008Q2

REPORT INFORMATION
  Report Type: 
  Country: None (occurrence: None)
  Receive Date: 20080604
  Receipt Date: 20080523
  Transmission Date: 20081010
  Serious: Yes (Other)
  Sender: FDA-Public Use
  Company Number: US-KINGPHARMUSA00001-K200800588

PATIENT

DRUGS (5)
  1. ALTACE [Suspect]
     Indication: HYPERTENSION
     Dosage: 2.5 MG, QD
     Route: 048
     Dates: start: 20080101, end: 20080101
  2. ISMOX [Concomitant]
     Dosage: 40 MG, UNK
     Route: 048
  3. SPESICOR DOS [Concomitant]
     Dosage: 47.5 MG, UNK
     Route: 048
  4. LESCOL                             /01224501/ [Concomitant]
     Route: 048
  5. MAREVAN [Concomitant]
     Dosage: UNK, UNK
     Route: 048

REACTIONS (8)
  - ABDOMINAL DISTENSION [None]
  - ASTHENIA [None]
  - CHEST PAIN [None]
  - DRUG INEFFECTIVE [None]
  - HYPERTENSION [None]
  - MUSCULOSKELETAL PAIN [None]
  - OEDEMA PERIPHERAL [None]
  - PALPITATIONS [None]
